FAERS Safety Report 7293137-3 (Version None)
Quarter: 2011Q1

REPORT INFORMATION
  Report Type: 
  Country: None (occurrence: None)
  Receive Date: 20110215
  Receipt Date: 20110131
  Transmission Date: 20110831
  Serious: Yes (Hospitalization)
  Sender: FDA-Public Use
  Company Number: US-ROCHE-759527

PATIENT
  Sex: Male
  Weight: 3.1 kg

DRUGS (6)
  1. TACROLIMUS [Concomitant]
     Dosage: 2 MG AM AND 3MG PM
     Route: 064
  2. VITAMIN D [Concomitant]
  3. LABETALOL HCL [Concomitant]
  4. PREDNISONE [Concomitant]
     Dates: start: 20091005
  5. MYCOPHENOLATE MOFETIL [Suspect]
     Route: 064
     Dates: end: 20091005
  6. TACROLIMUS [Concomitant]
     Route: 064

REACTIONS (3)
  - JAUNDICE [None]
  - DYSPNOEA [None]
  - LIVE BIRTH [None]
